FAERS Safety Report 24550104 (Version 2)
Quarter: 2024Q4

REPORT INFORMATION
  Report Type: Spontaneous
  Country: US (occurrence: US)
  Receive Date: 20241025
  Receipt Date: 20241115
  Transmission Date: 20250115
  Serious: No
  Sender: NOVARTIS
  Company Number: US-002147023-NVSC2024US207350

PATIENT
  Sex: Male

DRUGS (1)
  1. LEQVIO [Suspect]
     Active Substance: INCLISIRAN SODIUM
     Indication: Hyperlipidaemia
     Dosage: 284 MG (284MG/1.5ML) (INITIAL DOSE, FOLLOW UP DOSE AT 3 MOS, THEN MAINTENANCE DOSE EVERY 6 MOS THERE
     Route: 058
     Dates: start: 20241018

REACTIONS (3)
  - Eye swelling [Unknown]
  - Crying [Unknown]
  - Hypersensitivity [Unknown]
